FAERS Safety Report 21119176 (Version 1)
Quarter: 2022Q3

REPORT INFORMATION
  Report Type: Spontaneous
  Country: US (occurrence: None)
  Receive Date: 20220721
  Receipt Date: 20220721
  Transmission Date: 20221027
  Serious: Yes (Hospitalization)
  Sender: FDA-Public Use
  Company Number: None

PATIENT
  Age: 55 Year
  Sex: Female
  Weight: 71 kg

DRUGS (2)
  1. WARFARIN SODIUM [Suspect]
     Active Substance: WARFARIN SODIUM
     Indication: Deep vein thrombosis
     Dates: start: 20210914, end: 20211019
  2. AMOXICILLIN\CLAVULANATE POTASSIUM [Suspect]
     Active Substance: AMOXICILLIN\CLAVULANATE POTASSIUM
     Dosage: 875 MG BID PO??DATE OF THERAP:  10/17/202 ~ 10/19/202
     Route: 048
     Dates: start: 20211017

REACTIONS (4)
  - Haematoma [None]
  - International normalised ratio increased [None]
  - Incorrect dose administered [None]
  - Overdose [None]

NARRATIVE: CASE EVENT DATE: 20211019
